FAERS Safety Report 13926607 (Version 1)
Quarter: 2017Q3

REPORT INFORMATION
  Report Type: Spontaneous
  Country: US (occurrence: None)
  Receive Date: 20170831
  Receipt Date: 20170831
  Transmission Date: 20171127
  Serious: Yes (Hospitalization)
  Sender: FDA-Public Use
  Company Number: None

PATIENT
  Age: 49 Year
  Sex: Male

DRUGS (1)
  1. DROPERIDOL/FENTANYL [Suspect]
     Active Substance: DROPERIDOL\FENTANYL
     Indication: SURGERY
     Dates: start: 20170705, end: 20170705

REACTIONS (5)
  - Nephrolithiasis [None]
  - Drug hypersensitivity [None]
  - Hyperthermia malignant [None]
  - Post procedural complication [None]
  - Compartment syndrome [None]

NARRATIVE: CASE EVENT DATE: 20170705
